FAERS Safety Report 16354750 (Version 1)
Quarter: 2019Q2

REPORT INFORMATION
  Report Type: Spontaneous
  Country: GB (occurrence: GB)
  Receive Date: 20190524
  Receipt Date: 20190524
  Transmission Date: 20190711
  Serious: Yes (Hospitalization, Other)
  Sender: FDA-Public Use
  Company Number: GB-ELI_LILLY_AND_COMPANY-GB201905009193

PATIENT
  Sex: Male

DRUGS (1)
  1. HUMALOG [Suspect]
     Active Substance: INSULIN LISPRO
     Indication: PRODUCT USED FOR UNKNOWN INDICATION
     Dosage: UNK, OTHER
     Route: 065
     Dates: start: 2016

REACTIONS (6)
  - Renal disorder [Unknown]
  - Neuropathy peripheral [Unknown]
  - Cellulitis [Unknown]
  - Skin wound [Unknown]
  - Abscess limb [Unknown]
  - Skin ulcer [Unknown]
